FAERS Safety Report 19481458 (Version 1)
Quarter: 2021Q3

REPORT INFORMATION
  Report Type: Spontaneous
  Country: TR (occurrence: TR)
  Receive Date: 20210701
  Receipt Date: 20210701
  Transmission Date: 20211014
  Serious: Yes (Other)
  Sender: FDA-Public Use
  Company Number: TR-ROCHE-2858498

PATIENT
  Age: 41 Year
  Sex: Female
  Weight: 100 kg

DRUGS (8)
  1. INLYTA [Suspect]
     Active Substance: AXITINIB
     Dosage: 25 AMOUNT
     Route: 065
  2. INLYTA [Suspect]
     Active Substance: AXITINIB
     Indication: ADENOID CYSTIC CARCINOMA
     Dosage: 2/DAY (MORNING AND EVENING)
     Route: 048
     Dates: start: 202003, end: 202008
  3. INLYTA [Suspect]
     Active Substance: AXITINIB
     Route: 065
     Dates: start: 20201115, end: 202102
  4. KORDEXA [Concomitant]
     Active Substance: DEXAMETHASONE
     Indication: BRAIN OEDEMA
     Dates: start: 202101, end: 202102
  5. ALTUZAN [Suspect]
     Active Substance: BEVACIZUMAB
     Indication: BRAIN OEDEMA
     Route: 065
     Dates: start: 202101, end: 202102
  6. ARVELES [Concomitant]
     Active Substance: DEXKETOPROFEN
  7. PROZAC [Concomitant]
     Active Substance: FLUOXETINE HYDROCHLORIDE
  8. INLYTA [Suspect]
     Active Substance: AXITINIB
     Dosage: CYCLIC (1*1)
     Route: 048
     Dates: start: 202009, end: 202012

REACTIONS (16)
  - Off label use [Unknown]
  - Brain oedema [Recovered/Resolved]
  - Visual impairment [Recovered/Resolved]
  - Speech disorder [Unknown]
  - Alanine aminotransferase increased [Recovering/Resolving]
  - Aspartate aminotransferase increased [Recovering/Resolving]
  - Aphonia [Recovered/Resolved]
  - Hepatic enzyme increased [Recovered/Resolved]
  - Headache [Recovered/Resolved]
  - Gait disturbance [Unknown]
  - Pulmonary fistula [Recovered/Resolved]
  - Hypotension [Recovered/Resolved]
  - Alopecia [Unknown]
  - Rectal ulcer [Recovered/Resolved]
  - Seizure [Unknown]
  - Neoplasm progression [Unknown]

NARRATIVE: CASE EVENT DATE: 202007
